FAERS Safety Report 5754010-2 (Version None)
Quarter: 2008Q2

REPORT INFORMATION
  Report Type: 
  Country: None (occurrence: None)
  Receive Date: 20080527
  Receipt Date: 20080527
  Transmission Date: 20081010
  Serious: Yes (Disabling)
  Sender: FDA-Public Use
  Company Number: None

PATIENT
  Age: 42 Year
  Sex: Female
  Weight: 68.0396 kg

DRUGS (2)
  1. CREST PRO HEALTH RINSE CETYLPYRIDINIUM CHLORIDE .07% CREST [Suspect]
     Indication: PROPHYLAXIS
     Dosage: 1 TABLESPOON 3-5 X A DAY DENTAL
     Route: 004
     Dates: start: 20080507, end: 20080523
  2. CREST PRO HEALTH RINSE CETYLPYRIDINIUM CHLORIDE .07% CREST [Suspect]
     Indication: STOMATITIS
     Dosage: 1 TABLESPOON 3-5 X A DAY DENTAL
     Route: 004
     Dates: start: 20080507, end: 20080523

REACTIONS (1)
  - TOOTH DISCOLOURATION [None]
